FAERS Safety Report 9954077 (Version 1)
Quarter: 2014Q1

REPORT INFORMATION
  Report Type: Report from Study
  Country: US (occurrence: US)
  Receive Date: 20140304
  Receipt Date: 20140304
  Transmission Date: 20141002
  Serious: No
  Sender: FDA-Public Use
  Company Number: US-ABBVIE-13P-163-1077537-00

PATIENT
  Sex: Male
  Weight: 70.37 kg

DRUGS (3)
  1. HUMIRA [Suspect]
     Indication: ANKYLOSING SPONDYLITIS
     Dates: start: 2010, end: 2010
  2. HUMIRA [Suspect]
     Dates: start: 2010
  3. CALCIUM [Concomitant]
     Indication: BONE LOSS

REACTIONS (2)
  - Injection site pain [Not Recovered/Not Resolved]
  - Drug effect decreased [Recovered/Resolved]
